FAERS Safety Report 8827416 (Version 1)
Quarter: 2012Q4

REPORT INFORMATION
  Report Type: 
  Country: US (occurrence: US)
  Receive Date: 20121005
  Receipt Date: 20121005
  Transmission Date: 20130627
  Serious: No
  Sender: FDA-Public Use
  Company Number: US-BRISTOL-MYERS SQUIBB COMPANY-16534604

PATIENT
  Sex: Female

DRUGS (1)
  1. AVAPRO [Suspect]
     Dates: start: 1998

REACTIONS (1)
  - Blood pressure inadequately controlled [Unknown]
